FAERS Safety Report 24962736 (Version 1)
Quarter: 2025Q1

REPORT INFORMATION
  Report Type: Report from Study
  Country: IE (occurrence: IE)
  Receive Date: 20250212
  Receipt Date: 20250212
  Transmission Date: 20250409
  Serious: Yes (Other)
  Sender: ALEXION PHARMACEUTICALS
  Company Number: IE-ASTRAZENECA-202502EEA004548IE

PATIENT
  Age: 60 Year

DRUGS (5)
  1. BENRALIZUMAB [Suspect]
     Active Substance: BENRALIZUMAB
     Indication: Asthma
     Dosage: 30 MILLIGRAM, Q8W
  2. FLUTIFORM [Concomitant]
     Active Substance: FLUTIFORM
     Dosage: 250 MICROGRAM, BID
     Route: 050
  3. SPIRIVA [Concomitant]
     Active Substance: TIOTROPIUM BROMIDE MONOHYDRATE
     Dosage: 5 MICROGRAM, QD
     Route: 050
  4. FLUTICASONE FUROATE [Concomitant]
     Active Substance: FLUTICASONE FUROATE
     Dosage: 62.5 MICROGRAM, QD
     Route: 050
  5. LOSEC [Concomitant]
     Active Substance: OMEPRAZOLE
     Dosage: 20 MILLIGRAM, QD
     Route: 050

REACTIONS (2)
  - Lower respiratory tract infection [Recovered/Resolved]
  - Product dose omission issue [Unknown]
